FAERS Safety Report 24269230 (Version 4)
Quarter: 2025Q3

REPORT INFORMATION
  Report Type: Report from Study
  Country: US (occurrence: US)
  Receive Date: 20240830
  Receipt Date: 20250804
  Transmission Date: 20251020
  Serious: Yes (Other)
  Sender: Haleon PLC
  Company Number: US-HALEON-2194199

PATIENT
  Age: 0 Day
  Sex: Male
  Weight: 8.618 kg

DRUGS (10)
  1. ADVIL [Suspect]
     Active Substance: IBUPROFEN
     Indication: Migraine
     Route: 064
  2. LIDOCAINE [Suspect]
     Active Substance: LIDOCAINE
     Indication: Migraine
     Dosage: 100 MCG, Q 2 WEEKS?DOSE FORM: UNKNOWN
     Route: 064
     Dates: start: 20240118
  3. TYLENOL [Suspect]
     Active Substance: ACETAMINOPHEN
     Indication: Migraine
     Route: 064
  4. FROVATRIPTAN [Suspect]
     Active Substance: FROVATRIPTAN
     Indication: Migraine
     Route: 064
  5. MAXALT [Suspect]
     Active Substance: RIZATRIPTAN BENZOATE
     Indication: Migraine
     Route: 064
  6. NURTEC ODT [Suspect]
     Active Substance: RIMEGEPANT SULFATE
     Indication: Migraine
     Dosage: FREQUENCY: QOD?DOSE FORM: UNKNOWN
     Route: 064
     Dates: end: 20240118
  7. NURTEC ODT [Suspect]
     Active Substance: RIMEGEPANT SULFATE
     Route: 064
  8. BOTOX [Suspect]
     Active Substance: ONABOTULINUMTOXINA
     Indication: Migraine
     Route: 064
     Dates: start: 20231016
  9. AMITRIPTYLINE [Suspect]
     Active Substance: AMITRIPTYLINE
     Indication: Migraine
     Dosage: 40-50 MG?DOSE FORM: UNKNOWN
     Route: 064
     Dates: start: 20231115
  10. PROPRANOLOL [Suspect]
     Active Substance: PROPRANOLOL HYDROCHLORIDE
     Indication: Migraine
     Dosage: 20-30 MG
     Route: 064
     Dates: start: 20240118

REACTIONS (1)
  - Nonreassuring foetal heart rate pattern [Recovered/Resolved]

NARRATIVE: CASE EVENT DATE: 20240712
